FAERS Safety Report 19506523 (Version 1)
Quarter: 2021Q3

REPORT INFORMATION
  Report Type: Spontaneous
  Country: US (occurrence: US)
  Receive Date: 20210708
  Receipt Date: 20210708
  Transmission Date: 20211014
  Serious: No
  Sender: FDA-Public Use
  Company Number: US-SA-2021SA215384

PATIENT
  Sex: Male

DRUGS (1)
  1. LOVENOX [Suspect]
     Active Substance: ENOXAPARIN SODIUM
     Indication: PROSTATE ABLATION
     Dosage: 8 DAYS REMAINING ON PRESCRIPTION
     Route: 065

REACTIONS (4)
  - Product contamination [Recovering/Resolving]
  - Syringe issue [Recovering/Resolving]
  - Injection site oedema [Recovering/Resolving]
  - Product administration error [Recovering/Resolving]

NARRATIVE: CASE EVENT DATE: 20210628
